FAERS Safety Report 9285885 (Version 2)
Quarter: 2013Q3

REPORT INFORMATION
  Report Type: Spontaneous
  Country: US (occurrence: US)
  Receive Date: 20130513
  Receipt Date: 20130717
  Transmission Date: 20140515
  Serious: Yes (Hospitalization, Other)
  Sender: FDA-Public Use
  Company Number: US-BAYER-2013-058847

PATIENT
  Age: 38 Year
  Sex: Female

DRUGS (5)
  1. YAZ [Suspect]
     Dosage: UNK
     Dates: start: 2008, end: 2009
  2. YASMIN [Suspect]
     Indication: CONTRACEPTION
     Dosage: UNK
     Dates: start: 2008, end: 2009
  3. OCELLA [Suspect]
     Dosage: UNK
     Dates: start: 2008, end: 2009
  4. METHYLPREDNISOLONE [Concomitant]
  5. ADVIL [Concomitant]

REACTIONS (11)
  - Deep vein thrombosis [None]
  - Thrombosis [None]
  - Injury [None]
  - Pain [None]
  - Emotional distress [None]
  - General physical health deterioration [None]
  - Anxiety [None]
  - Abdominal pain [None]
  - Pain [None]
  - Pulmonary embolism [None]
  - Cholelithiasis [None]
